FAERS Safety Report 8770607 (Version 1)
Quarter: 2012Q4

REPORT INFORMATION
  Report Type: 
  Country: FR (occurrence: FR)
  Receive Date: 20120906
  Receipt Date: 20120906
  Transmission Date: 20130627
  Serious: Yes (Life-Threatening, Hospitalization)
  Sender: FDA-Public Use
  Company Number: PHHY2012FR077086

PATIENT
  Age: 64 Year
  Sex: Female

DRUGS (21)
  1. MYFORTIC [Suspect]
     Indication: RENAL TRANSPLANT
     Dosage: 720 mg, BID
     Route: 048
     Dates: start: 201206
  2. MYFORTIC [Suspect]
     Dosage: 360 mg, BID
     Route: 048
     Dates: start: 20120801
  3. MYFORTIC [Suspect]
     Dosage: 360 mg, QD
     Route: 048
     Dates: start: 20120817
  4. ROVALCYTE [Suspect]
     Dosage: 450 mg, QW3
     Route: 048
     Dates: start: 201206
  5. CARDENSIEL [Suspect]
     Dosage: 1.25 mg, BID
     Route: 048
     Dates: start: 201206
  6. SOLUPRED [Concomitant]
  7. DEPAMIDE [Concomitant]
  8. NOZINAN [Concomitant]
  9. HALDOL [Concomitant]
  10. LEPTICUR [Concomitant]
  11. LEVOTHYROX [Concomitant]
  12. MOPRAL [Concomitant]
  13. COUMADINE [Concomitant]
     Dates: end: 20120817
  14. RAMIPRIL [Concomitant]
     Dates: end: 20120725
  15. ARANESP [Concomitant]
  16. BELATACEPT [Concomitant]
     Dosage: 500 mg, monthly
     Route: 042
     Dates: start: 20120615
  17. BELATACEPT [Concomitant]
     Dosage: 500 mg, monthly
     Route: 042
     Dates: start: 20120709
  18. BELATACEPT [Concomitant]
     Dosage: 500 mg, monthly
     Route: 042
     Dates: start: 20120808
  19. ALLOPURINOL [Concomitant]
     Dosage: 400 mg, QW3
     Dates: start: 201206, end: 20120725
  20. LASILIX [Concomitant]
     Dosage: 80 mg, UNK
     Dates: start: 201206, end: 20120817
  21. BACTRIM [Concomitant]
     Dates: end: 20120725

REACTIONS (5)
  - Agranulocytosis [Recovered/Resolved]
  - Sepsis [Unknown]
  - C-reactive protein increased [Unknown]
  - Candidiasis [Unknown]
  - Urosepsis [None]
